FAERS Safety Report 9135694 (Version 2)
Quarter: 2013Q1

REPORT INFORMATION
  Report Type: Spontaneous
  Country: DE (occurrence: DE)
  Receive Date: 20130304
  Receipt Date: 20130311
  Transmission Date: 20140127
  Serious: Yes (Hospitalization, Other)
  Sender: FDA-Public Use
  Company Number: DE-JNJFOC-20121201398

PATIENT
  Age: 86 Year
  Sex: Female

DRUGS (4)
  1. XARELTO [Suspect]
     Indication: ATRIAL FIBRILLATION
     Route: 048
     Dates: start: 20120720
  2. XARELTO [Suspect]
     Indication: CEREBROVASCULAR ACCIDENT PROPHYLAXIS
     Route: 048
     Dates: start: 20120720
  3. METOPROLOL [Concomitant]
     Route: 065
  4. RAMIPRIL [Concomitant]
     Route: 065

REACTIONS (5)
  - Basal ganglia haemorrhage [Not Recovered/Not Resolved]
  - Hemiparesis [Unknown]
  - Aspiration [Unknown]
  - Aphasia [Unknown]
  - Dysphagia [Unknown]
